FAERS Safety Report 13145293 (Version 1)
Quarter: 2017Q1

REPORT INFORMATION
  Report Type: Report from Study
  Country: US (occurrence: US)
  Receive Date: 20170124
  Receipt Date: 20170124
  Transmission Date: 20170428
  Serious: Yes (Hospitalization)
  Sender: FDA-Public Use
  Company Number: US-ROCHE-1882448

PATIENT
  Age: 58 Year
  Sex: Female
  Weight: 56.3 kg

DRUGS (3)
  1. LUCENTIS [Suspect]
     Active Substance: RANIBIZUMAB
     Indication: EYE DISORDER
     Dosage: ONGOING:NO
     Route: 065
     Dates: start: 2016
  2. LUCENTIS [Suspect]
     Active Substance: RANIBIZUMAB
     Indication: MACULAR OEDEMA
  3. LUCENTIS [Suspect]
     Active Substance: RANIBIZUMAB
     Indication: TYPE 1 DIABETES MELLITUS

REACTIONS (5)
  - Renal failure [Not Recovered/Not Resolved]
  - Eye disorder [Not Recovered/Not Resolved]
  - Fall [Unknown]
  - Wrist fracture [Unknown]
  - Blood disorder [Recovered/Resolved]

NARRATIVE: CASE EVENT DATE: 201602
